FAERS Safety Report 5951339-X (Version None)
Quarter: 2008Q4

REPORT INFORMATION
  Report Type: 
  Country: None (occurrence: None)
  Receive Date: 20081022
  Receipt Date: 20080915
  Transmission Date: 20090506
  Serious: No
  Sender: FDA-Public Use
  Company Number: ALL1-2008-02227

PATIENT
  Age: 7 Year
  Sex: Male
  Weight: 44.4 kg

DRUGS (1)
  1. VYVANSE [Suspect]
     Indication: ATTENTION DEFICIT/HYPERACTIVITY DISORDER
     Dosage: 30 MG, 1X/DAY:QD, ORAL
     Route: 048
     Dates: start: 20080301

REACTIONS (3)
  - DISTURBANCE IN ATTENTION [None]
  - DYSARTHRIA [None]
  - WEIGHT DECREASED [None]
